FAERS Safety Report 13464497 (Version 1)
Quarter: 2017Q2

REPORT INFORMATION
  Report Type: Spontaneous
  Country: US (occurrence: US)
  Receive Date: 20170420
  Receipt Date: 20170420
  Transmission Date: 20170830
  Serious: Yes (Other)
  Sender: FDA-Public Use
  Company Number: US-ROCHE-727672

PATIENT
  Sex: Female

DRUGS (2)
  1. ORAL CONTRACEPTIVE PILL [Concomitant]
     Active Substance: UNSPECIFIED INGREDIENT
     Route: 065
  2. ACCUTANE [Suspect]
     Active Substance: ISOTRETINOIN
     Indication: ACNE CYSTIC
     Route: 065
     Dates: start: 1982, end: 1983

REACTIONS (7)
  - Inflammatory bowel disease [Unknown]
  - Depression [Unknown]
  - Abdominal pain [Unknown]
  - Crohn^s disease [Unknown]
  - Rectal haemorrhage [Unknown]
  - Colitis ulcerative [Unknown]
  - Nausea [Unknown]

NARRATIVE: CASE EVENT DATE: 1983
